FAERS Safety Report 7242130-5 (Version None)
Quarter: 2011Q1

REPORT INFORMATION
  Report Type: 
  Country: None (occurrence: None)
  Receive Date: 20110124
  Receipt Date: 20110124
  Transmission Date: 20110831
  Serious: Yes (Hospitalization)
  Sender: FDA-Public Use
  Company Number: US-B.I. PHARMACEUTICALS,INC./RIDGEFIELD-2010-BP-15288BP

PATIENT
  Age: 82 Year
  Sex: Male
  Weight: 96.62 kg

DRUGS (6)
  1. MULTAQ [Concomitant]
     Dosage: 400 MG
  2. LISINOPRIL [Concomitant]
     Dosage: 10 MG
  3. PRADAXA [Suspect]
     Indication: ATRIAL FIBRILLATION
     Dosage: 300 MG
     Dates: start: 20101206, end: 20101211
  4. PRAVACHOL [Concomitant]
     Dosage: 40 MG
  5. LOPRESSOR [Concomitant]
     Dosage: 100 MG
  6. CARDURA [Concomitant]
     Dosage: 1 MG

REACTIONS (6)
  - RENAL FAILURE CHRONIC [None]
  - CREATININE RENAL CLEARANCE DECREASED [None]
  - POST PROCEDURAL HAEMORRHAGE [None]
  - MOUTH HAEMORRHAGE [None]
  - PENILE HAEMORRHAGE [None]
  - BLOOD URINE PRESENT [None]
